FAERS Safety Report 9425839 (Version 1)
Quarter: 2013Q3

REPORT INFORMATION
  Report Type: Spontaneous
  Country: CH (occurrence: CH)
  Receive Date: 20130729
  Receipt Date: 20130729
  Transmission Date: 20140515
  Serious: Yes (Hospitalization)
  Sender: FDA-Public Use
  Company Number: CH-ELI_LILLY_AND_COMPANY-CH201306008363

PATIENT
  Age: 75 Year
  Sex: Male
  Weight: 60 kg

DRUGS (2)
  1. HUMALOG LISPRO [Suspect]
  2. HUMALOG LISPRO [Suspect]
     Dosage: UNK
     Dates: start: 201306

REACTIONS (2)
  - Hyperglycaemia [Unknown]
  - Underdose [Unknown]
